FAERS Safety Report 6884805-3 (Version None)
Quarter: 2010Q3

REPORT INFORMATION
  Report Type: 
  Country: None (occurrence: None)
  Receive Date: 20100729
  Receipt Date: 20070912
  Transmission Date: 20110219
  Serious: No
  Sender: FDA-Public Use
  Company Number: US-PFIZER INC-2007076419

PATIENT
  Age: 52 Year
  Sex: Female
  Weight: 72.7 kg

DRUGS (3)
  1. CELEBREX [Suspect]
     Indication: RHEUMATOID ARTHRITIS
     Dates: start: 20070101
  2. CELEBREX [Suspect]
     Indication: SCIATICA
  3. ADVIL LIQUI-GELS [Concomitant]
     Indication: MUSCLE SPASMS

REACTIONS (5)
  - GLOSSODYNIA [None]
  - LIP EXFOLIATION [None]
  - OROPHARYNGEAL PAIN [None]
  - RASH [None]
  - SWOLLEN TONGUE [None]
